FAERS Safety Report 10068316 (Version 1)
Quarter: 2014Q2

REPORT INFORMATION
  Report Type: Spontaneous
  Country: US (occurrence: US)
  Receive Date: 20140409
  Receipt Date: 20140409
  Transmission Date: 20141212
  Serious: No
  Sender: FDA-Public Use
  Company Number: US-PFIZER INC-2014096948

PATIENT
  Age: 56 Year
  Sex: Female
  Weight: 48 kg

DRUGS (17)
  1. PREMARIN [Suspect]
     Indication: VULVOVAGINAL DRYNESS
     Dosage: 0.625 MG, WEEKLY
     Route: 067
  2. IBUPROFEN [Concomitant]
     Indication: ARTHRALGIA
     Dosage: UNK
  3. LORAZEPAM [Concomitant]
     Indication: SLEEP DISORDER
     Dosage: UNK
  4. BIOTIN [Concomitant]
     Indication: HAIR DISORDER
     Dosage: UNK
  5. BIOTIN [Concomitant]
     Indication: NAIL DISORDER
  6. FOSAMAX [Concomitant]
     Indication: BONE DISORDER
     Dosage: 70 MG, WEEKLY
  7. CALCIUM CARBONATE/VITAMIN D [Concomitant]
     Indication: BONE DISORDER
     Dosage: UNK
  8. DEPAKOTE [Concomitant]
     Indication: BIPOLAR DISORDER
     Dosage: 250 MG, DAILY (IN A DAY)
  9. HYDROCORTISONE [Concomitant]
     Indication: RASH
     Dosage: UNK, AS NEEDED
  10. ATIVAN [Concomitant]
     Dosage: 1 MG, 3X/DAY
  11. ZYPREXA [Concomitant]
     Dosage: 10 MG, 1X/DAY (AT BED TIME)
     Route: 048
  12. WELLBUTRIN [Concomitant]
     Indication: BIPOLAR DISORDER
     Dosage: UNK
  13. VIBRAMYCIN [Concomitant]
     Indication: ACNE
     Dosage: 50 MG, AS NEEDED
  14. RETIN A [Concomitant]
     Indication: ACNE
     Dosage: UNK, AS NEEDED
  15. FISH OIL [Concomitant]
     Dosage: 2000 MG (BY TAKING TWO CAPSULES OF 1000 MG), 1X/DAY
  16. SPIRONOLACTONE [Concomitant]
     Dosage: 50 MG, 2X/DAY
  17. OSTEO BI-FLEX [Concomitant]
     Dosage: UNK

REACTIONS (1)
  - Joint injury [Not Recovered/Not Resolved]
